FAERS Safety Report 4877345-4 (Version None)
Quarter: 2006Q1

REPORT INFORMATION
  Report Type: 
  Country: None (occurrence: None)
  Receive Date: 20060106
  Receipt Date: 20051222
  Transmission Date: 20060701
  Serious: Yes (Hospitalization)
  Sender: FDA-Public Use
  Company Number: MPS1-10462

PATIENT
  Age: 29 Month
  Sex: Female
  Weight: 11 kg

DRUGS (4)
  1. ALDURAZYME [Suspect]
     Indication: MUCOPOLYSACCHARIDOSIS IH
     Dosage: 100 U/KG QWK IV
     Route: 042
     Dates: start: 20050520, end: 20051201
  2. ACETAMINOPHEN [Concomitant]
  3. HYDROXYZINE HYDROCHLORIDE [Concomitant]
  4. HEPARIN SODIUM [Concomitant]

REACTIONS (7)
  - ASTHMA [None]
  - BRONCHITIS [None]
  - DISEASE RECURRENCE [None]
  - OTITIS MEDIA [None]
  - PHARYNGITIS [None]
  - RESPIRATORY SYNCYTIAL VIRUS INFECTION [None]
  - URTICARIA [None]
